FAERS Safety Report 15248915 (Version 1)
Quarter: 2018Q3

REPORT INFORMATION
  Report Type: Spontaneous
  Country: US (occurrence: US)
  Receive Date: 20180807
  Receipt Date: 20180807
  Transmission Date: 20181010
  Serious: No
  Sender: FDA-Public Use
  Company Number: US-PFIZER INC-2018311836

PATIENT

DRUGS (1)
  1. ADVIL PM [Suspect]
     Active Substance: DIPHENHYDRAMINE CITRATE\IBUPROFEN
     Dosage: UNK

REACTIONS (6)
  - Dysgeusia [Unknown]
  - Pre-existing condition improved [Unknown]
  - Poor quality drug administered [Unknown]
  - Product physical consistency issue [Unknown]
  - Therapeutic response unexpected [Unknown]
  - Product taste abnormal [Unknown]
